FAERS Safety Report 15474659 (Version 4)
Quarter: 2020Q1

REPORT INFORMATION
  Report Type: Report from Study
  Country: US (occurrence: US)
  Receive Date: 20181008
  Receipt Date: 20200324
  Transmission Date: 20200409
  Serious: Yes (Hospitalization, Other)
  Sender: FDA-Public Use
  Company Number: US-EISAI MEDICAL RESEARCH-EC-2018-041704

PATIENT
  Age: 81 Year
  Sex: Male

DRUGS (4)
  1. LENVIMA [Suspect]
     Active Substance: LENVATINIB
     Route: 048
     Dates: start: 2019
  2. AMOXICILLIN. [Concomitant]
     Active Substance: AMOXICILLIN
  3. LENVIMA [Suspect]
     Active Substance: LENVATINIB
     Indication: THYROID CANCER
     Route: 048
     Dates: start: 201702, end: 201809
  4. LENVIMA [Suspect]
     Active Substance: LENVATINIB
     Route: 048
     Dates: end: 2019

REACTIONS (15)
  - Hyperaesthesia [Recovering/Resolving]
  - Dental caries [Not Recovered/Not Resolved]
  - Decreased appetite [Unknown]
  - Weight decreased [Unknown]
  - Osteonecrosis of jaw [Not Recovered/Not Resolved]
  - Cyst [Recovering/Resolving]
  - Abdominal pain [Unknown]
  - Lower respiratory tract infection [Recovering/Resolving]
  - Impaired healing [Recovering/Resolving]
  - Bone disorder [Recovering/Resolving]
  - Blood pressure increased [Not Recovered/Not Resolved]
  - Fall [Unknown]
  - Injury [Recovering/Resolving]
  - Contusion [Recovering/Resolving]
  - Nausea [Unknown]

NARRATIVE: CASE EVENT DATE: 2018
